FAERS Safety Report 9506356 (Version 1)
Quarter: 2013Q1

REPORT INFORMATION
  Report Type: Spontaneous
  Country: US (occurrence: None)
  Receive Date: 20130305
  Receipt Date: 20130305
  Transmission Date: 20140127
  Serious: Yes (Hospitalization)
  Sender: FDA-Public Use
  Company Number: 163-21880-12050402

PATIENT
  Age: 81 Year
  Sex: Female
  Weight: 77.11 kg

DRUGS (9)
  1. REVLIMID (LENALIDOMIDE) [Suspect]
     Indication: PLASMA CELL MYELOMA
     Route: 048
     Dates: start: 20100717
  2. FOLIC ACID (FOLIC ACID) [Concomitant]
  3. HYMAX [Concomitant]
  4. PANTOPRAZOLE [Suspect]
  5. LORAZEPAM [Suspect]
  6. AMLODIPINE [Suspect]
  7. CALCITONIN [Suspect]
  8. ASA (ACETYLSALICYLIC ACID) [Suspect]
  9. CENTRUM SILVER [Suspect]

REACTIONS (1)
  - Anaemia [None]
